FAERS Safety Report 24087838 (Version 1)
Quarter: 2024Q3

REPORT INFORMATION
  Report Type: Report from Study
  Country: DE (occurrence: DE)
  Receive Date: 20240715
  Receipt Date: 20240715
  Transmission Date: 20241017
  Serious: No
  Sender: ROCHE
  Company Number: DE-ROCHE-3396319

PATIENT
  Age: 26 Year
  Sex: Male

DRUGS (2)
  1. OCREVUS [Suspect]
     Active Substance: OCRELIZUMAB
     Indication: Relapsing-remitting multiple sclerosis
     Route: 042
     Dates: start: 20230725
  2. HERBALS [Concomitant]
     Active Substance: HERBALS

REACTIONS (5)
  - Fatigue [Recovered/Resolved]
  - Blister [Recovered/Resolved]
  - Hypersensitivity [Unknown]
  - Nasopharyngitis [Recovered/Resolved]
  - COVID-19 [Recovered/Resolved]

NARRATIVE: CASE EVENT DATE: 20230725
